FAERS Safety Report 24886371 (Version 1)
Quarter: 2025Q1

REPORT INFORMATION
  Report Type: Report from Study
  Country: JP (occurrence: JP)
  Receive Date: 20250126
  Receipt Date: 20250126
  Transmission Date: 20250409
  Serious: Yes (Other)
  Sender: ARDELYX
  Company Number: JP-ARDELYX-2025ARDX000334

PATIENT
  Age: 70 Year
  Sex: Female
  Weight: 39.4 kg

DRUGS (7)
  1. TENAPANOR HYDROCHLORIDE [Suspect]
     Active Substance: TENAPANOR HYDROCHLORIDE
     Indication: Hyperphosphataemia
     Route: 048
     Dates: start: 20240617, end: 20241008
  2. TENAPANOR HYDROCHLORIDE [Suspect]
     Active Substance: TENAPANOR HYDROCHLORIDE
     Route: 048
     Dates: start: 20241009, end: 20241022
  3. TENAPANOR HYDROCHLORIDE [Suspect]
     Active Substance: TENAPANOR HYDROCHLORIDE
     Route: 048
     Dates: start: 20241023
  4. LANTHANUM CARBONATE [Concomitant]
     Active Substance: LANTHANUM CARBONATE
     Indication: Product used for unknown indication
     Route: 065
     Dates: start: 20240522, end: 20240904
  5. OXAROL [Concomitant]
     Active Substance: MAXACALCITOL
     Indication: Product used for unknown indication
     Route: 065
  6. LAGNOS NF [Concomitant]
     Indication: Product used for unknown indication
     Route: 065
     Dates: start: 20240610
  7. LANTHANUM CARBONATE [Concomitant]
     Active Substance: LANTHANUM CARBONATE
     Indication: Product used for unknown indication
     Route: 065

REACTIONS (2)
  - Shunt occlusion [Recovered/Resolved]
  - Diarrhoea [Recovered/Resolved]

NARRATIVE: CASE EVENT DATE: 20240705
